FAERS Safety Report 10956154 (Version 1)
Quarter: 2015Q1

REPORT INFORMATION
  Report Type: Spontaneous
  Country: US (occurrence: None)
  Receive Date: 20150325
  Receipt Date: 20150325
  Transmission Date: 20150721
  Serious: Yes (Other)
  Sender: FDA-Public Use
  Company Number: None

PATIENT
  Age: 22 Year
  Sex: Female

DRUGS (1)
  1. SIMPONI [Suspect]
     Active Substance: GOLIMUMAB
     Indication: RHEUMATOID ARTHRITIS
     Dosage: 100MG Q8 WEEKS IV
     Route: 042
     Dates: start: 20141120

REACTIONS (2)
  - Pharyngitis streptococcal [None]
  - Respiratory tract infection [None]

NARRATIVE: CASE EVENT DATE: 20150323
